FAERS Safety Report 24142643 (Version 2)
Quarter: 2024Q3

REPORT INFORMATION
  Report Type: Report from Study
  Country: MX (occurrence: None)
  Receive Date: 20240726
  Receipt Date: 20240806
  Transmission Date: 20241017
  Serious: Yes (Other)
  Sender: ASTRAZENECA
  Company Number: 2024A167365

PATIENT
  Age: 29312 Day
  Sex: Female
  Weight: 59 kg

DRUGS (5)
  1. DAPAGLIFLOZIN [Suspect]
     Active Substance: DAPAGLIFLOZIN
     Indication: Cardiac failure
     Route: 048
     Dates: start: 20240209
  2. SPIRONOLACTONE [Concomitant]
     Active Substance: SPIRONOLACTONE
  3. FUROSEMIDE [Concomitant]
     Active Substance: FUROSEMIDE
  4. APIXABAN [Concomitant]
     Active Substance: APIXABAN
  5. CARVEDILOL [Concomitant]
     Active Substance: CARVEDILOL

REACTIONS (10)
  - Erysipelas [Recovering/Resolving]
  - Cellulitis [Recovering/Resolving]
  - Cardiomegaly [Not Recovered/Not Resolved]
  - Erythrasma [Unknown]
  - Limb discomfort [Not Recovered/Not Resolved]
  - Blood test abnormal [Unknown]
  - Insomnia [Unknown]
  - Wound haemorrhage [Recovering/Resolving]
  - Pruritus [Recovering/Resolving]
  - Fungal infection [Recovering/Resolving]

NARRATIVE: CASE EVENT DATE: 20240301
